FAERS Safety Report 24354459 (Version 6)
Quarter: 2024Q4

REPORT INFORMATION
  Report Type: Spontaneous
  Country: US (occurrence: US)
  Receive Date: 20240923
  Receipt Date: 20241007
  Transmission Date: 20250114
  Serious: Yes (Other)
  Sender: ROCHE
  Company Number: US-ROCHE-10000086440

PATIENT
  Age: 79 Year

DRUGS (3)
  1. TNKASE [Suspect]
     Active Substance: TENECTEPLASE
     Indication: Product used for unknown indication
     Route: 065
  2. TNKASE [Suspect]
     Active Substance: TENECTEPLASE
     Route: 065
  3. ACTIVASE [Suspect]
     Active Substance: ALTEPLASE
     Indication: Cerebrovascular accident
     Route: 065

REACTIONS (2)
  - Angioedema [Recovered/Resolved]
  - Off label use [Unknown]
